FAERS Safety Report 17244505 (Version 7)
Quarter: 2020Q4

REPORT INFORMATION
  Report Type: Spontaneous
  Country: US (occurrence: US)
  Receive Date: 20200107
  Receipt Date: 20201202
  Transmission Date: 20210113
  Serious: Yes (Hospitalization, Other)
  Sender: FDA-Public Use
  Company Number: US-GILEAD-2020-0445103

PATIENT
  Age: 43 Year
  Sex: Male
  Weight: 97.05 kg

DRUGS (89)
  1. ISENTRESS [Concomitant]
     Active Substance: RALTEGRAVIR POTASSIUM
     Indication: HIV INFECTION
     Dosage: UNK
     Dates: start: 201212, end: 201709
  2. PEPCID [Concomitant]
     Active Substance: FAMOTIDINE
     Dosage: UNK
     Dates: start: 201909
  3. PORCINE-FASTACT [Concomitant]
  4. VASCEPA [Concomitant]
     Active Substance: ICOSAPENT ETHYL
     Indication: HYPERCHOLESTEROLAEMIA
     Dosage: UNK
     Dates: start: 201902
  5. RENAGEL [Concomitant]
     Active Substance: SEVELAMER HYDROCHLORIDE
  6. CRIXIVAN [Concomitant]
     Active Substance: INDINAVIR SULFATE
     Indication: HIV INFECTION
  7. CLONAZEPAM. [Concomitant]
     Active Substance: CLONAZEPAM
     Dosage: UNK
     Dates: start: 200109
  8. METFORMIN [Concomitant]
     Active Substance: METFORMIN HYDROCHLORIDE
     Indication: DIABETES MELLITUS
     Dosage: UNK
     Dates: start: 201310, end: 201311
  9. ACETAMINOPHEN AND CODEINE [Concomitant]
     Active Substance: ACETAMINOPHEN\CODEINE PHOSPHATE
     Indication: PROCEDURAL PAIN
  10. INSULIN PORCINE [Concomitant]
     Active Substance: INSULIN PORK\INSULIN PURIFIED PORK
  11. ALLOPURINOL. [Concomitant]
     Active Substance: ALLOPURINOL
  12. NOVOLOG [Concomitant]
     Active Substance: INSULIN ASPART
     Indication: DIABETES MELLITUS
     Dosage: UNK
     Dates: start: 201610
  13. ISENTRESS [Concomitant]
     Active Substance: RALTEGRAVIR POTASSIUM
     Indication: HIV INFECTION
  14. GLIMEPIRIDE. [Concomitant]
     Active Substance: GLIMEPIRIDE
  15. ARANESP [Concomitant]
     Active Substance: DARBEPOETIN ALFA
  16. HYDROXYZINE [Concomitant]
     Active Substance: HYDROXYZINE HYDROCHLORIDE
  17. LAMIVUDINE. [Concomitant]
     Active Substance: LAMIVUDINE
  18. KALETRA [Concomitant]
     Active Substance: LOPINAVIR\RITONAVIR
     Indication: HIV INFECTION
  19. BENZONATATE. [Concomitant]
     Active Substance: BENZONATATE
  20. SIMVASTATIN. [Concomitant]
     Active Substance: SIMVASTATIN
     Indication: HYPERCHOLESTEROLAEMIA
     Dosage: UNK
     Dates: start: 201106, end: 201107
  21. TIVICAY [Concomitant]
     Active Substance: DOLUTEGRAVIR SODIUM
     Indication: HIV INFECTION
  22. ACETAMINOPHEN AND CODEINE [Concomitant]
     Active Substance: ACETAMINOPHEN\CODEINE PHOSPHATE
     Indication: PROCEDURAL PAIN
     Dosage: UNK
     Dates: start: 201909, end: 201909
  23. VIREAD [Suspect]
     Active Substance: TENOFOVIR DISOPROXIL FUMARATE
     Indication: HIV INFECTION
     Dosage: UNK
     Route: 048
     Dates: start: 20020529, end: 2013
  24. COMPLERA [Suspect]
     Active Substance: EMTRICITABINE\RILPIVIRINE HYDROCHLORIDE\TENOFOVIR DISOPROXIL FUMARATE
     Dosage: UNK
     Route: 048
     Dates: start: 2001, end: 2013
  25. EPIVIR [Concomitant]
     Active Substance: LAMIVUDINE
     Indication: HIV INFECTION
     Dosage: UNK
     Dates: start: 20010313, end: 200509
  26. KALETRA [Concomitant]
     Active Substance: LOPINAVIR\RITONAVIR
     Indication: HIV INFECTION
     Dosage: UNK
     Dates: start: 201212, end: 201311
  27. RENVELA [Concomitant]
     Active Substance: SEVELAMER CARBONATE
  28. HEPARIN [Concomitant]
     Active Substance: HEPARIN SODIUM
     Dosage: UNK
     Dates: start: 201801, end: 201909
  29. METFORMIN [Concomitant]
     Active Substance: METFORMIN HYDROCHLORIDE
     Indication: DIABETES MELLITUS
  30. TRAZODONE [Concomitant]
     Active Substance: TRAZODONE HYDROCHLORIDE
     Dosage: UNK
     Dates: start: 201211, end: 201211
  31. EMLA [Concomitant]
     Active Substance: LIDOCAINE\PRILOCAINE
  32. LOVAZA [Concomitant]
     Active Substance: OMEGA-3-ACID ETHYL ESTERS
  33. VIRACEPT [Concomitant]
     Active Substance: NELFINAVIR MESYLATE
     Indication: HIV INFECTION
  34. VIRAMUNE [Concomitant]
     Active Substance: NEVIRAPINE
     Indication: HIV INFECTION
  35. DILAUDID [Concomitant]
     Active Substance: HYDROMORPHONE HYDROCHLORIDE
  36. NEVIRAPINE. [Concomitant]
     Active Substance: NEVIRAPINE
  37. GEMFIBROZIL. [Concomitant]
     Active Substance: GEMFIBROZIL
     Indication: HYPERCHOLESTEROLAEMIA
  38. TESTOSTERONE. [Concomitant]
     Active Substance: TESTOSTERONE
     Indication: HORMONE THERAPY
     Dosage: UNK
     Dates: start: 201903, end: 201903
  39. PREDNISONE. [Concomitant]
     Active Substance: PREDNISONE
     Indication: STEROID THERAPY
  40. AMOXICILLIN. [Concomitant]
     Active Substance: AMOXICILLIN
     Indication: INFECTION
     Dosage: UNK
     Dates: start: 201603, end: 201604
  41. SIMVASTATIN. [Concomitant]
     Active Substance: SIMVASTATIN
     Indication: HYPERCHOLESTEROLAEMIA
  42. COMBIVIR [Concomitant]
     Active Substance: LAMIVUDINE\ZIDOVUDINE
     Indication: HIV INFECTION
     Dosage: UNK
     Dates: start: 2001, end: 2001
  43. VIREAD [Suspect]
     Active Substance: TENOFOVIR DISOPROXIL FUMARATE
     Dosage: UNK
     Route: 048
     Dates: start: 20020529, end: 2007
  44. HUMALOG [Concomitant]
     Active Substance: INSULIN LISPRO
     Indication: DIABETES MELLITUS
  45. LISINOPRIL. [Concomitant]
     Active Substance: LISINOPRIL
     Dosage: UNK
     Dates: start: 200709, end: 2017
  46. CRESTOR [Concomitant]
     Active Substance: ROSUVASTATIN CALCIUM
     Indication: HYPERCHOLESTEROLAEMIA
     Dosage: UNK
     Dates: start: 201106, end: 201403
  47. NORCO [Concomitant]
     Active Substance: ACETAMINOPHEN\HYDROCODONE BITARTRATE
  48. GEMFIBROZIL. [Concomitant]
     Active Substance: GEMFIBROZIL
     Indication: HYPERCHOLESTEROLAEMIA
     Dosage: UNK
     Dates: start: 201002, end: 201012
  49. AZITHROMYCIN ANHYDROUS. [Concomitant]
     Active Substance: AZITHROMYCIN ANHYDROUS
  50. JULUCA [Concomitant]
     Active Substance: DOLUTEGRAVIR SODIUM\RILPIVIRINE HYDROCHLORIDE
     Indication: HIV INFECTION
     Dosage: UNK
     Dates: start: 201806
  51. TESTOSTERONE. [Concomitant]
     Active Substance: TESTOSTERONE
     Indication: HORMONE THERAPY
  52. DIALYVITE [Concomitant]
     Active Substance: ASCORBIC ACID\BIOTIN\CALCIUM PANTOTHENATE\COBALAMIN\FOLIC ACID\NIACINAMIDE\PYRIDOXINE HYDROCHLORIDE\RIBOFLAVIN\THIAMINE MONONITRATE
  53. AMOXICILLIN. [Concomitant]
     Active Substance: AMOXICILLIN
     Indication: INFECTION
     Dosage: UNK
     Dates: start: 201403, end: 201404
  54. CRIXIVAN [Concomitant]
     Active Substance: INDINAVIR SULFATE
     Indication: HIV INFECTION
     Dosage: UNK
     Dates: start: 2001, end: 2001
  55. PREZCOBIX [Concomitant]
     Active Substance: COBICISTAT\DARUNAVIR ETHANOLATE
     Indication: HIV INFECTION
     Dosage: UNK
     Dates: start: 2018, end: 2018
  56. TIVICAY [Concomitant]
     Active Substance: DOLUTEGRAVIR SODIUM
     Indication: HIV INFECTION
     Dosage: UNK
     Dates: start: 2018, end: 2018
  57. ZERIT [Concomitant]
     Active Substance: STAVUDINE
     Indication: HIV INFECTION
  58. LORAZEPAM. [Concomitant]
     Active Substance: LORAZEPAM
     Dosage: UNK
     Dates: start: 20010508, end: 20010712
  59. HYDROCHLOROTHIAZIDE. [Concomitant]
     Active Substance: HYDROCHLOROTHIAZIDE
     Indication: HYPERTENSION
     Dosage: UNK
     Dates: start: 200710, end: 200711
  60. VIREAD [Suspect]
     Active Substance: TENOFOVIR DISOPROXIL FUMARATE
     Indication: HIV INFECTION
     Dosage: UNK, QOD
     Route: 048
     Dates: start: 20041025, end: 2013
  61. VIREAD [Suspect]
     Active Substance: TENOFOVIR DISOPROXIL FUMARATE
     Dosage: UNK
     Route: 048
     Dates: start: 2007, end: 201306
  62. COMPLERA [Suspect]
     Active Substance: EMTRICITABINE\RILPIVIRINE HYDROCHLORIDE\TENOFOVIR DISOPROXIL FUMARATE
     Indication: HIV INFECTION
  63. LEVEMIR [Concomitant]
     Active Substance: INSULIN DETEMIR
     Indication: DIABETES MELLITUS
  64. PHENERGAN [Concomitant]
     Active Substance: PROMETHAZINE HYDROCHLORIDE
  65. TYLENOL [Concomitant]
     Active Substance: ACETAMINOPHEN
  66. VASCEPA [Concomitant]
     Active Substance: ICOSAPENT ETHYL
     Indication: HYPERCHOLESTEROLAEMIA
  67. AMLODIPINE [Concomitant]
     Active Substance: AMLODIPINE BESYLATE
     Indication: HYPERTENSION
     Dosage: UNK
     Dates: start: 201901
  68. PREDNISONE. [Concomitant]
     Active Substance: PREDNISONE
     Indication: STEROID THERAPY
     Dosage: UNK
     Dates: start: 201910
  69. PREZCOBIX [Concomitant]
     Active Substance: COBICISTAT\DARUNAVIR ETHANOLATE
     Indication: HIV INFECTION
  70. HUMALOG [Concomitant]
     Active Substance: INSULIN LISPRO
     Indication: DIABETES MELLITUS
     Dosage: UNK
     Dates: start: 201601, end: 201602
  71. VIRAMUNE [Concomitant]
     Active Substance: NEVIRAPINE
     Indication: HIV INFECTION
     Dosage: UNK
     Dates: start: 2001, end: 2013
  72. CRESTOR [Concomitant]
     Active Substance: ROSUVASTATIN CALCIUM
     Indication: HYPERCHOLESTEROLAEMIA
  73. ONDANSETRON [Concomitant]
     Active Substance: ONDANSETRON
  74. KLONOPIN [Concomitant]
     Active Substance: CLONAZEPAM
  75. METHYLPREDNISOLONE. [Concomitant]
     Active Substance: METHYLPREDNISOLONE
     Indication: STEROID THERAPY
     Dosage: UNK
     Dates: start: 201009, end: 201009
  76. OXYCODONE AND ACETAMINOPHEN [Concomitant]
     Active Substance: ACETAMINOPHEN\OXYCODONE HYDROCHLORIDE
     Dosage: UNK
     Dates: start: 200909, end: 200909
  77. METOPROLOL [METOPROLOL SUCCINATE] [Concomitant]
     Indication: HYPERTENSION
     Dosage: UNK
     Dates: start: 2019, end: 2019
  78. AMITRIPTYLINE [Concomitant]
     Active Substance: AMITRIPTYLINE
  79. GLYBURIDE. [Concomitant]
     Active Substance: GLYBURIDE
     Indication: DIABETES MELLITUS
  80. LEVEMIR [Concomitant]
     Active Substance: INSULIN DETEMIR
     Indication: DIABETES MELLITUS
     Dosage: UNK
     Dates: start: 201601, end: 201602
  81. LANTUS [Concomitant]
     Active Substance: INSULIN GLARGINE
  82. NOVOLOG [Concomitant]
     Active Substance: INSULIN ASPART
     Indication: DIABETES MELLITUS
  83. EPIVIR [Concomitant]
     Active Substance: LAMIVUDINE
     Indication: HIV INFECTION
  84. VIRACEPT [Concomitant]
     Active Substance: NELFINAVIR MESYLATE
     Indication: HIV INFECTION
     Dosage: UNK
     Dates: start: 201403, end: 201709
  85. NORVASC [Concomitant]
     Active Substance: AMLODIPINE BESYLATE
  86. LIDOCAINE AND PRILOCAINE [Concomitant]
     Active Substance: LIDOCAINE\PRILOCAINE
  87. GLYBURIDE. [Concomitant]
     Active Substance: GLYBURIDE
     Indication: DIABETES MELLITUS
     Dosage: UNK
     Dates: start: 201310, end: 201311
  88. COMBIVIR [Concomitant]
     Active Substance: LAMIVUDINE\ZIDOVUDINE
     Indication: HIV INFECTION
  89. ZERIT [Concomitant]
     Active Substance: STAVUDINE
     Indication: HIV INFECTION
     Dosage: UNK
     Dates: start: 200103, end: 200205

REACTIONS (20)
  - Nephrolithiasis [Not Recovered/Not Resolved]
  - Acute kidney injury [Not Recovered/Not Resolved]
  - Azotaemia [Not Recovered/Not Resolved]
  - Tooth loss [Unknown]
  - Pain [Not Recovered/Not Resolved]
  - Renal transplant [Unknown]
  - Metabolic acidosis [Not Recovered/Not Resolved]
  - Diabetes mellitus [Not Recovered/Not Resolved]
  - Decreased activity [Not Recovered/Not Resolved]
  - Anxiety [Unknown]
  - Hyperparathyroidism secondary [Not Recovered/Not Resolved]
  - End stage renal disease [Not Recovered/Not Resolved]
  - Hyperkalaemia [Not Recovered/Not Resolved]
  - Impaired work ability [Not Recovered/Not Resolved]
  - Emotional distress [Not Recovered/Not Resolved]
  - Renal impairment [Unknown]
  - Anhedonia [Unknown]
  - Renal failure [Not Recovered/Not Resolved]
  - Renal failure [Not Recovered/Not Resolved]
  - Economic problem [Not Recovered/Not Resolved]

NARRATIVE: CASE EVENT DATE: 20041025
